FAERS Safety Report 6208479-X (Version None)
Quarter: 2009Q2

REPORT INFORMATION
  Report Type: 
  Country: None (occurrence: None)
  Receive Date: 20090529
  Receipt Date: 20090519
  Transmission Date: 20091009
  Serious: Yes (Hospitalization)
  Sender: FDA-Public Use
  Company Number: US-PFIZER INC-2007022766

PATIENT
  Sex: Male
  Weight: 143 kg

DRUGS (3)
  1. MARAVIROC [Suspect]
     Indication: HIV TEST POSITIVE
     Dosage: 150 MG, 1X/DAY
     Route: 048
     Dates: start: 20050317, end: 20070926
  2. TRUVADA [Concomitant]
     Dosage: 300/200 MG
     Route: 048
     Dates: start: 20050317
  3. KALETRA [Concomitant]
     Dosage: 400/100 MG
     Route: 048
     Dates: start: 20050317

REACTIONS (1)
  - BURKITT'S LYMPHOMA [None]
